FAERS Safety Report 4421858-6 (Version None)
Quarter: 2004Q3

REPORT INFORMATION
  Report Type: 
  Country: None (occurrence: None)
  Receive Date: 20040802
  Receipt Date: 20040802
  Transmission Date: 20050211
  Serious: Yes (Hospitalization)
  Sender: FDA-Public Use
  Company Number: None

PATIENT
  Age: 51 Year
  Sex: Female

DRUGS (1)
  1. GEMZAR [Suspect]
     Indication: CARCINOMA

REACTIONS (2)
  - DYSPNOEA [None]
  - RESTRICTIVE PULMONARY DISEASE [None]
